FAERS Safety Report 9834647 (Version 1)
Quarter: 2014Q1

REPORT INFORMATION
  Report Type: Spontaneous
  Country: ES (occurrence: ES)
  Receive Date: 20140122
  Receipt Date: 20140122
  Transmission Date: 20141002
  Serious: Yes (Hospitalization)
  Sender: FDA-Public Use
  Company Number: ES-JNJFOC-20140109125

PATIENT
  Age: 43 Year
  Sex: Male

DRUGS (1)
  1. SIMPONI [Suspect]
     Indication: POLYARTHRITIS
     Route: 058
     Dates: end: 20131220

REACTIONS (3)
  - Cellulitis [Unknown]
  - Abscess limb [Unknown]
  - Headache [Recovered/Resolved]
